FAERS Safety Report 19103275 (Version 2)
Quarter: 2022Q2

REPORT INFORMATION
  Report Type: Report from Study
  Country: CA (occurrence: CA)
  Receive Date: 20210407
  Receipt Date: 20220413
  Transmission Date: 20220721
  Serious: Yes (Hospitalization)
  Sender: FDA-Public Use
  Company Number: CA-ELI_LILLY_AND_COMPANY-CA202104000075

PATIENT
  Age: 38 Year
  Sex: Male

DRUGS (2)
  1. TALTZ [Suspect]
     Active Substance: IXEKIZUMAB
     Indication: Product used for unknown indication
     Dosage: 160 MG, SINGLE (LOADING DOSE)
     Route: 065
     Dates: start: 20210318
  2. TALTZ [Suspect]
     Active Substance: IXEKIZUMAB
     Indication: Product used for unknown indication
     Dosage: 160 MG, SINGLE (LOADING DOSE)
     Route: 065
     Dates: start: 20210318

REACTIONS (6)
  - Chest pain [Unknown]
  - Mobility decreased [Unknown]
  - Urticaria [Recovered/Resolved]
  - Arthritis [Unknown]
  - Psoriasis [Unknown]
  - Drug ineffective [Unknown]

NARRATIVE: CASE EVENT DATE: 20210324
